FAERS Safety Report 15940274 (Version 3)
Quarter: 2019Q1

REPORT INFORMATION
  Report Type: Spontaneous
  Country: US (occurrence: US)
  Receive Date: 20190208
  Receipt Date: 20190226
  Transmission Date: 20190417
  Serious: Yes (Other)
  Sender: FDA-Public Use
  Company Number: US-ASTRAZENECA-2018SF22235

PATIENT

DRUGS (28)
  1. CALCITRIOL. [Concomitant]
     Active Substance: CALCITRIOL
  2. AMLODIPINE BESYLATE. [Concomitant]
     Active Substance: AMLODIPINE BESYLATE
  3. CETRIZINE [Concomitant]
     Active Substance: CETIRIZINE HYDROCHLORIDE
  4. URECHOLINE [Concomitant]
     Active Substance: BETHANECHOL CHLORIDE
  5. SERTRALINE [Concomitant]
     Active Substance: SERTRALINE HYDROCHLORIDE
  6. POTASSIUM CHLORIDE. [Concomitant]
     Active Substance: POTASSIUM CHLORIDE
  7. CARDURA [Concomitant]
     Active Substance: DOXAZOSIN MESYLATE
  8. MIRALAX [Concomitant]
     Active Substance: POLYETHYLENE GLYCOL 3350
  9. SENOKOT [Concomitant]
     Active Substance: SENNOSIDES
  10. CIPRO [Concomitant]
     Active Substance: CIPROFLOXACIN HYDROCHLORIDE
  11. TORSEMIDE. [Concomitant]
     Active Substance: TORSEMIDE
  12. BUPROPION. [Concomitant]
     Active Substance: BUPROPION
  13. SIMVASTATIN. [Concomitant]
     Active Substance: SIMVASTATIN
  14. NORVASC [Concomitant]
     Active Substance: AMLODIPINE BESYLATE
  15. NEXIUM [Suspect]
     Active Substance: ESOMEPRAZOLE MAGNESIUM
     Route: 048
     Dates: start: 201201, end: 201612
  16. NEXIUM [Suspect]
     Active Substance: ESOMEPRAZOLE MAGNESIUM
     Route: 048
  17. CINNAMON. [Concomitant]
     Active Substance: CINNAMON
  18. METHYLPHENIDATE. [Concomitant]
     Active Substance: METHYLPHENIDATE
  19. GARLIC. [Concomitant]
     Active Substance: GARLIC
  20. VOLTAREN [Concomitant]
     Active Substance: DICLOFENAC SODIUM
  21. VITAMIN D [Concomitant]
     Active Substance: CHOLECALCIFEROL
  22. CYCLOBENZAPRINE. [Concomitant]
     Active Substance: CYCLOBENZAPRINE
  23. KEFLEX [Concomitant]
     Active Substance: CEPHALEXIN
  24. PRILOSEC [Suspect]
     Active Substance: OMEPRAZOLE MAGNESIUM
     Route: 048
     Dates: start: 201201, end: 201612
  25. DULOXETINE. [Concomitant]
     Active Substance: DULOXETINE
  26. REMERON [Concomitant]
     Active Substance: MIRTAZAPINE
  27. PROTONIX [Suspect]
     Active Substance: PANTOPRAZOLE SODIUM
     Route: 065
     Dates: start: 201201, end: 201612
  28. SYNTHROID [Concomitant]
     Active Substance: LEVOTHYROXINE SODIUM

REACTIONS (5)
  - Nephrogenic anaemia [Unknown]
  - Chronic kidney disease [Unknown]
  - Acute kidney injury [Unknown]
  - End stage renal disease [Unknown]
  - Renal injury [Unknown]
